FAERS Safety Report 17344934 (Version 2)
Quarter: 2020Q1

REPORT INFORMATION
  Report Type: Spontaneous
  Country: GB (occurrence: GB)
  Receive Date: 20200129
  Receipt Date: 20200309
  Transmission Date: 20200409
  Serious: Yes (Hospitalization)
  Sender: FDA-Public Use
  Company Number: GB-CELGENEUS-GBR-20200109529

PATIENT
  Age: 72 Year
  Sex: Male
  Weight: 65.7 kg

DRUGS (9)
  1. COLECALCIFEROL [Concomitant]
     Active Substance: CHOLECALCIFEROL
     Indication: VITAMIN D DEFICIENCY
     Dosage: 1600 IU (INTERNATIONAL UNIT)
     Route: 048
     Dates: start: 20180117
  2. GRANISETRON [Concomitant]
     Active Substance: GRANISETRON
     Indication: VOMITING
  3. COLECALCIFEROL [Concomitant]
     Active Substance: CHOLECALCIFEROL
     Indication: OSTEOPENIA
  4. PRACINOSTAT [Concomitant]
     Active Substance: PRACINOSTAT
     Indication: ACUTE MYELOID LEUKAEMIA
     Dosage: 60 MILLIGRAM
     Route: 048
     Dates: start: 20191028, end: 20200115
  5. MOVICOL/LAXIDO [Concomitant]
     Indication: CONSTIPATION
     Dosage: 1-2 SACHET 1-2 ONCE DAILY OR TWICE DAILY FOR 14 DAYS
     Route: 048
     Dates: start: 20191114
  6. ZOLADEX LA [Concomitant]
     Active Substance: GOSERELIN ACETATE
     Indication: PROSTATE CANCER
     Dosage: IMPLANT SAFETY SYSTEM PREFILLED SYRINGES
     Route: 058
     Dates: start: 2017
  7. TRANEXAMIC ACID. [Concomitant]
     Active Substance: TRANEXAMIC ACID
     Indication: EPISTAXIS
     Dosage: 1 GRAM
     Route: 065
     Dates: start: 20191030
  8. AZACITIDINE. [Suspect]
     Active Substance: AZACITIDINE
     Indication: ACUTE MYELOID LEUKAEMIA
     Dosage: 75 MILLIGRAM/SQ. METER
     Route: 058
     Dates: start: 20191028, end: 20200108
  9. GRANISETRON [Concomitant]
     Active Substance: GRANISETRON
     Indication: NAUSEA
     Dosage: 2 MILLIGRAM
     Route: 048
     Dates: start: 20191028

REACTIONS (1)
  - Epistaxis [Recovered/Resolved]

NARRATIVE: CASE EVENT DATE: 20200111
